FAERS Safety Report 24346273 (Version 1)
Quarter: 2024Q3

REPORT INFORMATION
  Report Type: Spontaneous
  Country: DE (occurrence: DE)
  Receive Date: 20240921
  Receipt Date: 20240921
  Transmission Date: 20241017
  Serious: Yes (Hospitalization, Disabling, Other)
  Sender: PANACEA BIOTEC
  Company Number: None

PATIENT
  Age: 52 Year
  Sex: Female

DRUGS (26)
  1. MYCOPHENOLATE MOFETIL [Suspect]
     Active Substance: MYCOPHENOLATE MOFETIL
     Indication: Immunosuppression
     Dosage: 2000 MG / DAY
     Route: 065
     Dates: end: 201305
  2. TACROLIMUS [Suspect]
     Active Substance: TACROLIMUS
     Indication: Immunosuppression
     Dosage: INITIAL TARGET TROUGH LEVEL 8-10 AND 6-7 NG/MICROLITRES
     Route: 065
     Dates: end: 201305
  3. VALGANCICLOVIR [Suspect]
     Active Substance: VALGANCICLOVIR
     Indication: Antiviral prophylaxis
     Route: 065
     Dates: start: 201307
  4. ALEMTUZUMAB [Suspect]
     Active Substance: ALEMTUZUMAB
     Indication: Immunosuppression
     Dosage: DAY 0 AND 1
     Route: 065
     Dates: end: 201305
  5. INFLIXIMAB [Suspect]
     Active Substance: INFLIXIMAB
     Indication: Immunosuppression
     Dosage: ONCE
     Route: 042
     Dates: start: 201310
  6. FOSCARNET SODIUM [Suspect]
     Active Substance: FOSCARNET SODIUM
     Indication: Antiviral prophylaxis
     Route: 065
     Dates: start: 201309
  7. PREDNISOLONE [Suspect]
     Active Substance: PREDNISOLONE
     Indication: Immunosuppression
     Dosage: TAPERED DOWN TO MAINTENANCE DOSE OF 5 MG/D
     Route: 065
     Dates: start: 201305
  8. CASPOFUNGIN [Suspect]
     Active Substance: CASPOFUNGIN
     Indication: Product used for unknown indication
     Route: 065
     Dates: start: 201307
  9. GANCICLOVIR [Suspect]
     Active Substance: GANCICLOVIR
     Indication: Antiviral prophylaxis
     Route: 042
  10. EVEROLIMUS [Suspect]
     Active Substance: EVEROLIMUS
     Indication: Immunosuppression
     Dosage: TARGET TROUGH LEVEL 2-3 NG/MICROLITRE
     Route: 065
     Dates: start: 201309, end: 201312
  11. VALGANCICLOVIR [Suspect]
     Active Substance: VALGANCICLOVIR
     Indication: Antiviral prophylaxis
     Route: 065
  12. ALEMTUZUMAB [Suspect]
     Active Substance: ALEMTUZUMAB
     Indication: Prophylaxis against transplant rejection
     Dosage: (DAY 0 AND 1)
     Route: 065
     Dates: end: 201305
  13. PREDNISOLONE [Suspect]
     Active Substance: PREDNISOLONE
     Indication: Immunosuppression
     Route: 065
     Dates: start: 201305
  14. PREDNISOLONE [Suspect]
     Active Substance: PREDNISOLONE
     Indication: Immunosuppression
     Dosage: INTRAOPERATIVELY
     Route: 065
     Dates: start: 201305
  15. GANCICLOVIR [Suspect]
     Active Substance: GANCICLOVIR
     Indication: Antiviral prophylaxis
     Route: 042
  16. GANCICLOVIR [Suspect]
     Active Substance: GANCICLOVIR
     Indication: Antiviral prophylaxis
     Route: 042
  17. GANCICLOVIR [Suspect]
     Active Substance: GANCICLOVIR
     Indication: Antiviral prophylaxis
     Route: 042
  18. TACROLIMUS [Suspect]
     Active Substance: TACROLIMUS
     Indication: Prophylaxis against transplant rejection
     Dosage: TARGET TROUGH LEVEL 3-4 NG/MICROLITRE
     Route: 065
     Dates: start: 201309, end: 201312
  19. PREDNISOLONE [Suspect]
     Active Substance: PREDNISOLONE
     Indication: Immunosuppression
     Route: 065
     Dates: start: 201310, end: 201310
  20. TACROLIMUS [Suspect]
     Active Substance: TACROLIMUS
     Indication: Prophylaxis against transplant rejection
     Dosage: INITIAL TARGET TROUGH LEVEL 8-10 AND 6-7 NG/MICROLITRES
     Route: 065
     Dates: end: 201305
  21. TACROLIMUS [Suspect]
     Active Substance: TACROLIMUS
     Indication: Immunosuppression
     Route: 065
     Dates: end: 201305
  22. TACROLIMUS [Suspect]
     Active Substance: TACROLIMUS
     Indication: Prophylaxis against transplant rejection
     Route: 065
     Dates: end: 201305
  23. TACROLIMUS [Suspect]
     Active Substance: TACROLIMUS
     Indication: Immunosuppression
     Dosage: TARGET TROUGH LEVEL 3-4 NG/MICROLITRE
     Route: 065
     Dates: end: 201305
  24. TACROLIMUS [Suspect]
     Active Substance: TACROLIMUS
     Indication: Prophylaxis against transplant rejection
     Dosage: TARGET TROUGH LEVEL 3-4 NG/MICROLITRE
     Route: 065
     Dates: end: 201305
  25. MYCOPHENOLATE MOFETIL [Suspect]
     Active Substance: MYCOPHENOLATE MOFETIL
     Indication: Prophylaxis against transplant rejection
     Dosage: 2000 MG / DAY
     Route: 065
     Dates: end: 201305
  26. VALGANCICLOVIR [Suspect]
     Active Substance: VALGANCICLOVIR
     Indication: Antiviral prophylaxis
     Route: 065

REACTIONS (8)
  - Organ failure [Unknown]
  - Transplant rejection [Unknown]
  - Cytomegalovirus infection [Recovered/Resolved]
  - Leukaemia [Unknown]
  - Drug ineffective [Unknown]
  - Cytomegalovirus oesophagitis [Recovered/Resolved]
  - Oesophageal candidiasis [Recovered/Resolved]
  - Cytomegalovirus gastritis [Unknown]
